FAERS Safety Report 9056225 (Version 2)
Quarter: 2013Q1

REPORT INFORMATION
  Report Type: Report from Study
  Country: CA (occurrence: CA)
  Receive Date: 20130205
  Receipt Date: 20130228
  Transmission Date: 20140127
  Serious: Yes (Other)
  Sender: FDA-Public Use
  Company Number: CA-JNJFOC-20130116199

PATIENT
  Age: 26 None
  Sex: Male
  Weight: 62.7 kg

DRUGS (4)
  1. REMICADE [Suspect]
     Indication: CROHN^S DISEASE
     Route: 042
     Dates: start: 20110516
  2. BENADRYL [Concomitant]
     Route: 048
  3. SOLUCORTEF [Concomitant]
     Route: 042
  4. PREDNISONE [Concomitant]
     Route: 048

REACTIONS (4)
  - Gastrointestinal obstruction [Recovering/Resolving]
  - Influenza like illness [Recovering/Resolving]
  - Weight decreased [Recovering/Resolving]
  - Abdominal discomfort [Recovering/Resolving]
